FAERS Safety Report 10111271 (Version 1)
Quarter: 2014Q2

REPORT INFORMATION
  Report Type: Spontaneous
  Country: US (occurrence: US)
  Receive Date: 20140425
  Receipt Date: 20140425
  Transmission Date: 20141212
  Serious: No
  Sender: FDA-Public Use
  Company Number: US-BAYER-2014-060406

PATIENT
  Age: 47 Year
  Sex: Female

DRUGS (1)
  1. GADAVIST [Suspect]
     Indication: DEAFNESS
     Dosage: 8.5CC, ONCE
     Route: 042
     Dates: start: 20140423, end: 20140423

REACTIONS (3)
  - Pruritus [None]
  - Dry skin [None]
  - Skin mass [None]
